FAERS Safety Report 5403779-5 (Version None)
Quarter: 2007Q3

REPORT INFORMATION
  Report Type: 
  Country: None (occurrence: None)
  Receive Date: 20070731
  Receipt Date: 20070731
  Transmission Date: 20080115
  Serious: Yes (Life-Threatening, Hospitalization, Disabling)
  Sender: FDA-Public Use
  Company Number: None

PATIENT
  Sex: Female
  Weight: 68.4932 kg

DRUGS (1)
  1. REDUX [Suspect]
     Indication: WEIGHT CONTROL
     Dosage: 1 CAPSULE 1 DAILY ORAL
     Route: 048
     Dates: start: 19960101

REACTIONS (3)
  - AORTIC VALVE INCOMPETENCE [None]
  - EJECTION FRACTION DECREASED [None]
  - MITRAL VALVE INCOMPETENCE [None]
